FAERS Safety Report 6212713-X (Version None)
Quarter: 2009Q2

REPORT INFORMATION
  Report Type: 
  Country: None (occurrence: None)
  Receive Date: 20090603
  Receipt Date: 20090528
  Transmission Date: 20091009
  Serious: Yes (Other)
  Sender: FDA-Public Use
  Company Number: BR-ASTRAZENECA-2008UW13933

PATIENT
  Age: 56 Year
  Sex: Female
  Weight: 92 kg

DRUGS (8)
  1. ARIMIDEX [Suspect]
     Indication: BREAST CANCER
     Route: 048
     Dates: start: 20070606
  2. ATENOLOL [Suspect]
     Indication: HYPERTENSION
     Route: 048
     Dates: start: 20020101
  3. OMEPRAZOLE [Suspect]
     Indication: GASTRITIS
     Route: 048
     Dates: start: 20040101
  4. ALDACTONE [Concomitant]
     Indication: HYPERTENSION
     Route: 048
     Dates: start: 20020101
  5. ARADOIS [Concomitant]
     Indication: HYPERTENSION
     Route: 048
     Dates: start: 20020101
  6. SLOW-K [Concomitant]
     Indication: ELECTROLYTE SUBSTITUTION THERAPY
     Route: 048
     Dates: start: 20020101
  7. GINGKO BILOBA [Concomitant]
     Indication: PROPHYLAXIS
     Route: 048
     Dates: start: 20050101
  8. SIBUTRAMINE [Concomitant]
     Indication: DECREASED APPETITE
     Route: 048
     Dates: start: 20070101

REACTIONS (10)
  - ARTHRALGIA [None]
  - BLOOD URIC ACID INCREASED [None]
  - BREAST MASS [None]
  - GAIT DISTURBANCE [None]
  - GASTRITIS [None]
  - MUSCLE SPASMS [None]
  - PAIN IN EXTREMITY [None]
  - TYPE 2 DIABETES MELLITUS [None]
  - VARICOSE VEIN [None]
  - WEIGHT DECREASED [None]
